FAERS Safety Report 12051317 (Version 1)
Quarter: 2016Q1

REPORT INFORMATION
  Report Type: Report from Study
  Country: US (occurrence: US)
  Receive Date: 20160209
  Receipt Date: 20160209
  Transmission Date: 20160526
  Serious: Yes (Death)
  Sender: FDA-Public Use
  Company Number: US-CELGENE-USA-2015082783

PATIENT

DRUGS (1)
  1. REVLIMID [Suspect]
     Active Substance: LENALIDOMIDE
     Indication: ADULT T-CELL LYMPHOMA/LEUKAEMIA RECURRENT
     Dosage: 25 MILLIGRAM
     Route: 048

REACTIONS (4)
  - Fatigue [Unknown]
  - Adult T-cell lymphoma/leukaemia [Fatal]
  - Thrombocytopenia [Unknown]
  - No therapeutic response [Unknown]
